FAERS Safety Report 4698044-8 (Version None)
Quarter: 2005Q2

REPORT INFORMATION
  Report Type: 
  Country: None (occurrence: None)
  Receive Date: 20050623
  Receipt Date: 20050429
  Transmission Date: 20051028
  Serious: Yes (Hospitalization)
  Sender: FDA-Public Use
  Company Number: US-BRISTOL-MYERS SQUIBB COMPANY-12951778

PATIENT
  Age: 70 Year
  Sex: Female
  Weight: 75 kg

DRUGS (11)
  1. TEQUIN [Suspect]
     Indication: URINARY TRACT INFECTION
     Route: 048
     Dates: start: 20050425
  2. DIOVAN [Concomitant]
  3. CORZIDE TABS 80/5 [Concomitant]
  4. MICRONASE [Concomitant]
  5. K-DUR 10 [Concomitant]
  6. TRICOR [Concomitant]
  7. PROTONIX [Concomitant]
  8. OMEGA-3 [Concomitant]
  9. GLUCOPHAGE [Concomitant]
  10. ASPIRIN [Concomitant]
  11. MOBIC [Concomitant]

REACTIONS (2)
  - CONFUSIONAL STATE [None]
  - HYPOGLYCAEMIA [None]
